FAERS Safety Report 20153601 (Version 1)
Quarter: 2021Q4

REPORT INFORMATION
  Report Type: Spontaneous
  Country: US (occurrence: US)
  Receive Date: 20211206
  Receipt Date: 20211206
  Transmission Date: 20220303
  Serious: No
  Sender: FDA-Public Use
  Company Number: US-BEH-2021138945

PATIENT
  Sex: Female

DRUGS (1)
  1. HIZENTRA [Suspect]
     Active Substance: HUMAN IMMUNOGLOBULIN G
     Indication: Myasthenia gravis
     Dosage: 13 GRAM, QW
     Route: 058
     Dates: start: 202106

REACTIONS (5)
  - Respiratory syncytial virus infection [Unknown]
  - Weight decreased [Unknown]
  - No adverse event [Unknown]
  - Off label use [Unknown]
  - Infusion site pruritus [Unknown]
